FAERS Safety Report 6136508-0 (Version None)
Quarter: 2009Q1

REPORT INFORMATION
  Report Type: 
  Country: None (occurrence: None)
  Receive Date: 20090330
  Receipt Date: 20090306
  Transmission Date: 20090719
  Serious: Yes (Hospitalization)
  Sender: FDA-Public Use
  Company Number: US-PFIZER INC-2008093631

PATIENT
  Sex: Female
  Weight: 61.224 kg

DRUGS (25)
  1. SILDENAFIL CITRATE [Suspect]
     Indication: PULMONARY HYPERTENSION
     Dosage: 20 MG, 3X/DAY
     Route: 048
     Dates: start: 20040304
  2. ORENCIA [Concomitant]
     Route: 042
  3. TEMAZEPAM [Concomitant]
     Route: 048
  4. CALCIUM [Concomitant]
     Route: 048
  5. CELLCEPT [Concomitant]
     Route: 048
  6. WARFARIN SODIUM [Concomitant]
     Route: 048
  7. ELAVIL [Concomitant]
     Route: 048
  8. PREDNISONE [Concomitant]
     Route: 048
  9. VANIQA [Concomitant]
     Route: 061
  10. TYLENOL W/ CODEINE NO. 3 [Concomitant]
     Route: 048
  11. POTASSIUM CHLORIDE [Concomitant]
     Route: 048
  12. PREVACID [Concomitant]
     Route: 048
  13. SPIRONOLACTONE [Concomitant]
     Route: 048
  14. TEARISOL [Concomitant]
     Route: 047
  15. FISH OIL [Concomitant]
     Route: 048
  16. FLOLAN [Concomitant]
     Route: 042
  17. FLUOCINONIDE [Concomitant]
     Route: 061
  18. FOLIC ACID [Concomitant]
     Route: 048
  19. FOSAMAX [Concomitant]
     Route: 058
  20. LYRICA [Concomitant]
     Route: 048
  21. VITAMIN D [Concomitant]
     Route: 048
  22. TRILEPTAL [Concomitant]
     Route: 048
  23. TRAMADOL HCL [Concomitant]
     Route: 048
  24. OXYGEN [Concomitant]
     Route: 045
  25. PLAQUENIL [Concomitant]
     Route: 048

REACTIONS (2)
  - SERRATIA INFECTION [None]
  - STAPHYLOCOCCAL INFECTION [None]
